FAERS Safety Report 22591686 (Version 1)
Quarter: 2023Q2

REPORT INFORMATION
  Report Type: Spontaneous
  Country: US (occurrence: None)
  Receive Date: 20230612
  Receipt Date: 20230612
  Transmission Date: 20230721
  Serious: No
  Sender: FDA-Public Use
  Company Number: US-ROCHE-3232698

PATIENT
  Sex: Female

DRUGS (4)
  1. CELLCEPT [Suspect]
     Active Substance: MYCOPHENOLATE MOFETIL
     Indication: Pemphigus
     Dosage: NO
     Route: 048
     Dates: start: 2018, end: 2018
  2. CELLCEPT [Suspect]
     Active Substance: MYCOPHENOLATE MOFETIL
     Dosage: NO
     Route: 048
     Dates: end: 202211
  3. HEPARIN [Suspect]
     Active Substance: HEPARIN SODIUM
     Indication: Catheter management
     Dosage: NO
     Route: 065
     Dates: end: 2022
  4. PREDNISONE [Concomitant]
     Active Substance: PREDNISONE
     Indication: Pemphigus

REACTIONS (10)
  - Off label use [Unknown]
  - Fatigue [Not Recovered/Not Resolved]
  - Headache [Not Recovered/Not Resolved]
  - Decreased appetite [Recovered/Resolved]
  - Ill-defined disorder [Recovered/Resolved]
  - Pyrexia [Recovered/Resolved]
  - Hypertension [Unknown]
  - Diarrhoea [Unknown]
  - Dehydration [Unknown]
  - Dry skin [Unknown]

NARRATIVE: CASE EVENT DATE: 20180101
